FAERS Safety Report 5874685-7 (Version None)
Quarter: 2008Q3

REPORT INFORMATION
  Report Type: 
  Country: None (occurrence: None)
  Receive Date: 20080909
  Receipt Date: 20080828
  Transmission Date: 20090109
  Serious: Yes (Other)
  Sender: FDA-Public Use
  Company Number: US-JNJFOC-20080900106

PATIENT
  Age: 84 Year
  Sex: Female
  Weight: 83.92 kg

DRUGS (9)
  1. LEVAQUIN [Suspect]
     Indication: DRUG USE FOR UNKNOWN INDICATION
     Dosage: SHE RECIEVED 54 TABLETS
     Route: 048
  2. EVISTA [Concomitant]
     Route: 048
  3. REGLAN [Concomitant]
     Route: 048
  4. POTASSIUM CHLORIDE [Concomitant]
     Route: 048
  5. MINOCYCLINE HCL [Concomitant]
     Route: 048
  6. ASPIRIN [Concomitant]
     Route: 048
  7. LEXIPRO [Concomitant]
     Route: 048
  8. DIGOXIN [Concomitant]
     Route: 065
  9. DIOVAN [Concomitant]
     Route: 065

REACTIONS (3)
  - INAPPROPRIATE SCHEDULE OF DRUG ADMINISTRATION [None]
  - NAUSEA [None]
  - VOMITING [None]
